FAERS Safety Report 8758460 (Version 2)
Quarter: 2012Q4

REPORT INFORMATION
  Report Type: 
  Country: US (occurrence: US)
  Receive Date: 20120829
  Receipt Date: 20121114
  Transmission Date: 20130627
  Serious: Yes (Other)
  Sender: FDA-Public Use
  Company Number: US-ROXANE LABORATORIES, INC.-2012-RO-01754RO

PATIENT
  Sex: Female

DRUGS (1)
  1. PREDNISONE [Suspect]

REACTIONS (6)
  - Bone marrow failure [Unknown]
  - Bone pain [Unknown]
  - Arthralgia [Unknown]
  - Groin pain [Unknown]
  - Toothache [Unknown]
  - Pain in jaw [Unknown]
